FAERS Safety Report 25881995 (Version 1)
Quarter: 2025Q4

REPORT INFORMATION
  Report Type: Spontaneous
  Country: CN (occurrence: CN)
  Receive Date: 20251005
  Receipt Date: 20251005
  Transmission Date: 20260118
  Serious: Yes (Other)
  Sender: BAXTER
  Company Number: None

PATIENT
  Age: 62 Year
  Sex: Female
  Weight: 61.5 kg

DRUGS (2)
  1. CYCLOPHOSPHAMIDE [Suspect]
     Active Substance: CYCLOPHOSPHAMIDE
     Indication: Invasive breast carcinoma
     Dosage: 0.9 G, QD (IVGTT), D1, (SECOND CYCLE OF NEOADJUVANT THERAPY) AC REGIMEN
     Route: 041
     Dates: start: 20250910, end: 20250910
  2. DOXORUBICIN HYDROCHLORIDE [Suspect]
     Active Substance: DOXORUBICIN HYDROCHLORIDE
     Indication: Invasive breast carcinoma
     Dosage: 40 MG, QD (IVGTT), D1, (SECOND CYCLE OF NEOADJUVANT THERAPY) AC REGIMEN
     Route: 041
     Dates: start: 20250910, end: 20250910

REACTIONS (8)
  - Depressed level of consciousness [Unknown]
  - Palmar-plantar erythrodysaesthesia syndrome [Unknown]
  - Hypoaesthesia [Recovering/Resolving]
  - Discomfort [Unknown]
  - Nausea [Recovering/Resolving]
  - Vomiting [Recovering/Resolving]
  - Flushing [Unknown]
  - Decreased appetite [Unknown]

NARRATIVE: CASE EVENT DATE: 20250910
